FAERS Safety Report 6432262-3 (Version None)
Quarter: 2009Q4

REPORT INFORMATION
  Report Type: 
  Country: None (occurrence: None)
  Receive Date: 20091109
  Receipt Date: 20091019
  Transmission Date: 20100525
  Serious: Yes (Other)
  Sender: FDA-Public Use
  Company Number: PHHY2009BR45216

PATIENT
  Sex: Female

DRUGS (5)
  1. FORASEQ [Suspect]
     Indication: COUGH
     Dosage: EVERY 12 HOURS
  2. FORASEQ [Suspect]
     Indication: WHEEZING
  3. ENALAPRIL MALEATE [Concomitant]
     Indication: HYPERTENSION
     Dosage: 10 MG
     Route: 048
  4. HYDROCHLOROTHIAZIDE [Concomitant]
     Indication: HYPERTENSION
     Dosage: 10 MG
     Route: 048
  5. GLIBENCLAMIDE [Concomitant]
     Indication: DIABETES MELLITUS
     Dosage: 5 MG
     Route: 048

REACTIONS (1)
  - COUGH [None]
